FAERS Safety Report 18735713 (Version 7)
Quarter: 2021Q3

REPORT INFORMATION
  Report Type: Spontaneous
  Country: CZ (occurrence: CZ)
  Receive Date: 20210113
  Receipt Date: 20210929
  Transmission Date: 20211014
  Serious: Yes (Hospitalization, Other)
  Sender: FDA-Public Use
  Company Number: CZ-MYLANLABS-2021M1001106

PATIENT
  Age: 45 Year
  Sex: Male

DRUGS (25)
  1. TOPIRAMATE. [Suspect]
     Active Substance: TOPIRAMATE
     Indication: EPILEPSY
     Dosage: 200 MILLIGRAM, QD
     Route: 065
  2. LAMOTRIGINE. [Suspect]
     Active Substance: LAMOTRIGINE
     Indication: DRUG THERAPY
  3. LEVETIRACETAM. [Suspect]
     Active Substance: LEVETIRACETAM
     Indication: EPILEPSY
     Dosage: UNK
     Route: 065
  4. VALPROIC ACID                      /00228502/ [Suspect]
     Active Substance: VALPROATE SODIUM
     Indication: EPILEPSY
     Dosage: UNK
  5. BRIVARACETAM [Concomitant]
     Active Substance: BRIVARACETAM
     Indication: EPILEPSY
     Dosage: 25 MILLIGRAM, BID,25?0?25 MG
  6. LAMOTRIGINE. [Suspect]
     Active Substance: LAMOTRIGINE
     Indication: SEIZURE
     Dosage: 400 MILLIGRAM, QD
  7. LEVETIRACETAM. [Suspect]
     Active Substance: LEVETIRACETAM
     Indication: SEIZURE
  8. CARBAMAZEPINE. [Suspect]
     Active Substance: CARBAMAZEPINE
     Indication: EPILEPSY
  9. VALPROIC ACID                      /00228502/ [Suspect]
     Active Substance: VALPROATE SODIUM
     Indication: DEPRESSION
  10. VALPROATE [Suspect]
     Active Substance: VALPROIC ACID
     Indication: PSYCHOGENIC SEIZURE
  11. VALPROATE [Suspect]
     Active Substance: VALPROIC ACID
     Indication: SEIZURE
  12. CARBAMAZEPINE. [Suspect]
     Active Substance: CARBAMAZEPINE
     Indication: SEIZURE
  13. BRIVARACETAM [Concomitant]
     Active Substance: BRIVARACETAM
     Dosage: 100 MG DAILY
  14. BRIVARACETAM [Concomitant]
     Active Substance: BRIVARACETAM
     Dosage: 25 MILLIGRAM, BID,25?0?25 MG
  15. LEVETIRACETAM. [Suspect]
     Active Substance: LEVETIRACETAM
     Indication: PSYCHOGENIC SEIZURE
  16. LEVETIRACETAM. [Suspect]
     Active Substance: LEVETIRACETAM
     Indication: DEPRESSION
  17. ESLICARBAZEPINE [Suspect]
     Active Substance: ESLICARBAZEPINE
     Indication: PSYCHOGENIC SEIZURE
  18. ESLICARBAZEPINE [Suspect]
     Active Substance: ESLICARBAZEPINE
     Indication: SEIZURE
  19. VALPROATE [Suspect]
     Active Substance: VALPROIC ACID
     Indication: DEPRESSION
  20. CARBAMAZEPINE. [Suspect]
     Active Substance: CARBAMAZEPINE
     Indication: PSYCHOGENIC SEIZURE
  21. TOPIRAMATE. [Suspect]
     Active Substance: TOPIRAMATE
     Indication: DRUG THERAPY
  22. CARBAMAZEPINE. [Suspect]
     Active Substance: CARBAMAZEPINE
     Indication: ERECTILE DYSFUNCTION
     Dosage: UNK
     Route: 065
  23. VALPROATE [Suspect]
     Active Substance: VALPROIC ACID
     Indication: WEIGHT INCREASED
     Dosage: UNK
     Route: 065
  24. ESLICARBAZEPINE [Suspect]
     Active Substance: ESLICARBAZEPINE
     Indication: EPILEPSY
     Dosage: UNK
     Route: 065
  25. VALPROATE [Suspect]
     Active Substance: VALPROIC ACID
     Indication: EPILEPSY

REACTIONS (11)
  - Erectile dysfunction [Unknown]
  - Psychogenic seizure [Recovered/Resolved]
  - Condition aggravated [Recovered/Resolved]
  - Mental disorder [Unknown]
  - Seizure [Not Recovered/Not Resolved]
  - Thinking abnormal [Unknown]
  - Drug ineffective for unapproved indication [Unknown]
  - Off label use [Unknown]
  - Drug intolerance [Unknown]
  - Weight increased [Unknown]
  - Psychiatric symptom [Unknown]
